FAERS Safety Report 8979445 (Version 1)
Quarter: 2012Q4

REPORT INFORMATION
  Report Type: Report from Study
  Country: US (occurrence: US)
  Receive Date: 20121221
  Receipt Date: 20121221
  Transmission Date: 20130627
  Serious: Yes (Life-Threatening)
  Sender: FDA-Public Use
  Company Number: US-ROCHE-1172072

PATIENT
  Sex: Female
  Weight: 99.88 kg

DRUGS (7)
  1. OMALIZUMAB [Suspect]
     Indication: ASTHMA
     Route: 058
     Dates: start: 20070104
  2. ADVAIR [Concomitant]
     Dosage: 500-50mg/dose
     Route: 055
  3. ALBUTEROL [Concomitant]
     Route: 055
  4. DUONEB [Concomitant]
     Dosage: 0.5-2.5mg/3ml
     Route: 055
  5. ZYRTEC [Concomitant]
  6. PREDNISONE [Concomitant]
     Route: 042
  7. SINGULAIR [Concomitant]
     Route: 048

REACTIONS (1)
  - Anaphylactic reaction [Unknown]
